FAERS Safety Report 18001943 (Version 2)
Quarter: 2020Q4

REPORT INFORMATION
  Report Type: Spontaneous
  Country: US (occurrence: US)
  Receive Date: 20200709
  Receipt Date: 20201216
  Transmission Date: 20210113
  Serious: Yes (Other)
  Sender: FDA-Public Use
  Company Number: US-PFIZER INC-2019446470

PATIENT
  Age: 63 Year
  Sex: Female

DRUGS (6)
  1. LYRICA [Suspect]
     Active Substance: PREGABALIN
     Dosage: 25 MG, UNK
  2. LYRICA [Suspect]
     Active Substance: PREGABALIN
     Dosage: 225 MG, DAILY (SIG: TAKE 2 CAPSULES BY MOUTH TWICE DAILY FOR 90 DAYS)
     Route: 048
  3. LYRICA [Suspect]
     Active Substance: PREGABALIN
     Dosage: 75 MG, 2X/DAY ((1 CAPSULE WITH 50 MG CAPSULE TO TOTAL 75 MG)
     Route: 048
  4. LYRICA [Suspect]
     Active Substance: PREGABALIN
     Dosage: 125 MG, DAILY(TAKE 2 BY MOUTH TWICE DAILY. TAKE ALONG WITH THE 25 MG CAPSULE)
     Route: 048
  5. LYRICA [Suspect]
     Active Substance: PREGABALIN
     Dosage: 50 MG, 3X/DAY
  6. LYRICA [Suspect]
     Active Substance: PREGABALIN
     Dosage: 25 MG, 2X/DAY (TAKE 1 CAPSULE BY MOUTH TWICE DAILY)
     Route: 048

REACTIONS (1)
  - Neuropathy peripheral [Unknown]
